FAERS Safety Report 14988994 (Version 3)
Quarter: 2018Q4

REPORT INFORMATION
  Report Type: Spontaneous
  Country: CA (occurrence: CA)
  Receive Date: 20180608
  Receipt Date: 20181129
  Transmission Date: 20190204
  Serious: Yes (Other)
  Sender: FDA-Public Use
  Company Number: CA-CELLTRION INC.-2017CA015749

PATIENT

DRUGS (13)
  1. CELECOXIB. [Suspect]
     Active Substance: CELECOXIB
     Indication: CROHN^S DISEASE
     Dosage: UNK, PRN
     Route: 065
     Dates: start: 201409
  2. CELECOXIB. [Suspect]
     Active Substance: CELECOXIB
     Indication: ANKYLOSING SPONDYLITIS
  3. ASCORBIC ACID. [Concomitant]
     Active Substance: ASCORBIC ACID
     Dosage: UNK
  4. INFLECTRA [Suspect]
     Active Substance: INFLIXIMAB-DYYB
     Dosage: 300 MG; CYCLIC (EVERY 8 WEEKS)
     Route: 042
     Dates: start: 20180530
  5. INFLECTRA [Suspect]
     Active Substance: INFLIXIMAB-DYYB
     Dosage: 300 MG; CYCLIC (EVERY 8 WEEKS)
     Route: 042
     Dates: start: 20180213, end: 20180213
  6. INFLECTRA [Suspect]
     Active Substance: INFLIXIMAB-DYYB
     Dosage: 300 MG; CYCLIC (EVERY 8 WEEKS)
     Route: 042
     Dates: start: 20180530
  7. AZATHIOPRINE. [Concomitant]
     Active Substance: AZATHIOPRINE
     Dosage: 100 MG, DAILY
     Route: 065
     Dates: start: 201407
  8. INFLECTRA [Suspect]
     Active Substance: INFLIXIMAB-DYYB
     Dosage: 300 MG; CYCLIC (EVERY 8 WEEKS)
     Route: 042
     Dates: start: 20181119
  9. VITAMIN D                          /00107901/ [Concomitant]
     Active Substance: ERGOCALCIFEROL
     Dosage: UNK, DAILY
     Route: 065
  10. MIRENA [Concomitant]
     Active Substance: LEVONORGESTREL
     Dosage: UNK
     Route: 065
  11. INFLECTRA [Suspect]
     Active Substance: INFLIXIMAB-DYYB
     Indication: CROHN^S DISEASE
     Dosage: 300 MG;CYCLIC (EVERY 8 WEEKS)
     Route: 042
     Dates: start: 20170829
  12. INFLECTRA [Suspect]
     Active Substance: INFLIXIMAB-DYYB
     Dosage: 300 MG; CYCLIC (EVERY 8 WEEKS)
     Route: 042
     Dates: start: 20180406
  13. INFLECTRA [Suspect]
     Active Substance: INFLIXIMAB-DYYB
     Dosage: 300 MG; CYCLIC (EVERY 8 WEEKS)
     Route: 042
     Dates: start: 20180918

REACTIONS (10)
  - Diarrhoea [Recovered/Resolved]
  - Condition aggravated [Unknown]
  - Paraesthesia oral [Recovered/Resolved]
  - Paraesthesia [Not Recovered/Not Resolved]
  - Dermatitis [Recovering/Resolving]
  - Abdominal distension [Recovered/Resolved]
  - Abdominal discomfort [Recovered/Resolved]
  - Sensory loss [Not Recovered/Not Resolved]
  - Flushing [Recovered/Resolved]
  - Lactic acidosis [Recovered/Resolved]

NARRATIVE: CASE EVENT DATE: 201710
